FAERS Safety Report 7348448-X (Version None)
Quarter: 2011Q1

REPORT INFORMATION
  Report Type: 
  Country: None (occurrence: None)
  Receive Date: 20110313
  Receipt Date: 20110301
  Transmission Date: 20110831
  Serious: Yes (Hospitalization)
  Sender: FDA-Public Use
  Company Number: US-JNJFOC-20110303510

PATIENT

DRUGS (7)
  1. AZATHIOPRINE [Concomitant]
     Indication: DRUG EXPOSURE DURING PREGNANCY
     Route: 064
  2. ACETAMINOPHEN [Concomitant]
     Route: 064
  3. ACETAMINOPHEN [Concomitant]
     Indication: DRUG EXPOSURE DURING PREGNANCY
     Route: 064
  4. INFLIXIMAB, RECOMBINANT [Suspect]
     Route: 064
  5. ANTIHISTAMINES [Concomitant]
     Route: 065
  6. INFLIXIMAB, RECOMBINANT [Suspect]
     Indication: DRUG EXPOSURE DURING PREGNANCY
     Route: 064
  7. ANTIHISTAMINES [Concomitant]
     Indication: DRUG EXPOSURE DURING PREGNANCY
     Route: 065

REACTIONS (2)
  - PREMATURE BABY [None]
  - PLACENTAL TRANSFUSION SYNDROME [None]
